FAERS Safety Report 20822074 (Version 3)
Quarter: 2023Q2

REPORT INFORMATION
  Report Type: Spontaneous
  Country: US (occurrence: US)
  Receive Date: 20220512
  Receipt Date: 20230413
  Transmission Date: 20230722
  Serious: No
  Sender: FDA-Public Use
  Company Number: US-PFIZER INC-202200561092

PATIENT
  Age: 26 Year
  Sex: Female

DRUGS (1)
  1. XELJANZ XR [Suspect]
     Active Substance: TOFACITINIB CITRATE
     Dosage: 11 MG

REACTIONS (5)
  - Laryngeal pain [Recovered/Resolved]
  - Oropharyngeal pain [Recovered/Resolved]
  - Therapeutic product effect decreased [Unknown]
  - Nasal congestion [Recovering/Resolving]
  - Feeling cold [Recovering/Resolving]
